FAERS Safety Report 7254317-6 (Version None)
Quarter: 2011Q1

REPORT INFORMATION
  Report Type: 
  Country: None (occurrence: None)
  Receive Date: 20110129
  Receipt Date: 20100122
  Transmission Date: 20110831
  Serious: No
  Sender: FDA-Public Use
  Company Number: US-ABBOTT-10P-163-0621486-00

PATIENT
  Sex: Female
  Weight: 79.904 kg

DRUGS (3)
  1. PENTASA [Concomitant]
     Indication: PRODUCT USED FOR UNKNOWN INDICATION
  2. HUMIRA [Suspect]
     Indication: CROHN'S DISEASE
     Route: 058
     Dates: start: 20090922
  3. ENTOCORT EC [Concomitant]
     Indication: PRODUCT USED FOR UNKNOWN INDICATION

REACTIONS (10)
  - GASTROINTESTINAL PAIN [None]
  - DIARRHOEA [None]
  - DYSPNOEA [None]
  - HAEMORRHAGE [None]
  - PAIN [None]
  - RED CELL DISTRIBUTION WIDTH INCREASED [None]
  - MEAN CELL VOLUME DECREASED [None]
  - PALLOR [None]
  - MEAN CELL HAEMOGLOBIN DECREASED [None]
  - DRUG INEFFECTIVE [None]
